FAERS Safety Report 13040295 (Version 1)
Quarter: 2016Q4

REPORT INFORMATION
  Report Type: Spontaneous
  Country: JP (occurrence: JP)
  Receive Date: 20161219
  Receipt Date: 20161219
  Transmission Date: 20170207
  Serious: Yes (Hospitalization)
  Sender: FDA-Public Use
  Company Number: PHJP2016JP034470

PATIENT
  Age: 40 Year
  Sex: Male
  Weight: 60 kg

DRUGS (1)
  1. ARRANON [Suspect]
     Active Substance: NELARABINE
     Indication: PRECURSOR T-LYMPHOBLASTIC LYMPHOMA/LEUKAEMIA STAGE I
     Dosage: 1500 MG/M2, UNK
     Route: 041
     Dates: start: 20160912, end: 20161015

REACTIONS (6)
  - Movement disorder [Not Recovered/Not Resolved]
  - Abasia [Unknown]
  - Sensory disturbance [Not Recovered/Not Resolved]
  - Radiculopathy [Unknown]
  - Dysstasia [Unknown]
  - Neuropathy peripheral [Unknown]

NARRATIVE: CASE EVENT DATE: 20161115
